FAERS Safety Report 9570438 (Version 1)
Quarter: 2013Q3

REPORT INFORMATION
  Report Type: Spontaneous
  Country: US (occurrence: None)
  Receive Date: 20130821
  Receipt Date: 20130821
  Transmission Date: 20140515
  Serious: No
  Sender: FDA-Public Use
  Company Number: 1000044957

PATIENT
  Age: 68 Year
  Sex: Female

DRUGS (4)
  1. TUDORZA PRESSAIR (ACLIDINIUM BROMIDE) (400 MICROGRAM, POWDER) [Suspect]
     Indication: ASTHMA
     Dosage: 800 MCG (400 MCG, 2 IN 1 D), RESPIRATORY (INHALATION)
     Dates: start: 201304, end: 20130503
  2. DUREZOL (DIFLUPREDNATE) [Concomitant]
  3. BROMDAY (BROMFENAC SODIUM) [Concomitant]
  4. ASPIRIN (ACETYLSALICYLIC ACID) [Concomitant]

REACTIONS (4)
  - Pruritus [None]
  - Urticaria [None]
  - Headache [None]
  - Off label use [None]
